FAERS Safety Report 11239551 (Version 2)
Quarter: 2016Q3

REPORT INFORMATION
  Report Type: Spontaneous
  Country: DE (occurrence: DE)
  Receive Date: 20150706
  Receipt Date: 20160919
  Transmission Date: 20161109
  Serious: Yes (Other)
  Sender: FDA-Public Use
  Company Number: DE-SA-2015SA096641

PATIENT
  Age: 43 Year
  Sex: Female

DRUGS (1)
  1. ALEMTUZUMAB [Suspect]
     Active Substance: ALEMTUZUMAB
     Indication: MULTIPLE SCLEROSIS
     Route: 065
     Dates: start: 201406

REACTIONS (6)
  - Meningitis listeria [Recovered/Resolved]
  - Headache [Recovered/Resolved]
  - Meningism [Recovered/Resolved]
  - C-reactive protein increased [Recovered/Resolved]
  - CSF neutrophil count increased [Recovered/Resolved]
  - Pyrexia [Recovered/Resolved]
